FAERS Safety Report 23230161 (Version 1)
Quarter: 2023Q4

REPORT INFORMATION
  Report Type: Spontaneous
  Country: US (occurrence: None)
  Receive Date: 20231124
  Receipt Date: 20231124
  Transmission Date: 20240110
  Serious: No
  Sender: FDA-Public Use
  Company Number: None

PATIENT
  Age: 55 Year
  Sex: Male

DRUGS (1)
  1. ENDARI [Suspect]
     Active Substance: GLUTAMINE
     Indication: Sickle cell anaemia
     Dosage: FREQUENCY : TWICE A DAY;?
     Route: 048
     Dates: start: 202306

REACTIONS (2)
  - Hot flush [None]
  - Intentional dose omission [None]

NARRATIVE: CASE EVENT DATE: 20231010
